FAERS Safety Report 6301750-2 (Version None)
Quarter: 2009Q3

REPORT INFORMATION
  Report Type: 
  Country: None (occurrence: None)
  Receive Date: 20090807
  Receipt Date: 20090730
  Transmission Date: 20100115
  Serious: Yes (Hospitalization, Other)
  Sender: FDA-Public Use
  Company Number: US-ABBOTT-09P-163-0588264-00

PATIENT
  Sex: Male

DRUGS (8)
  1. VICODIN [Suspect]
     Indication: DRUG USE FOR UNKNOWN INDICATION
  2. BETASERON [Suspect]
     Indication: RELAPSING-REMITTING MULTIPLE SCLEROSIS
     Dosage: 8 MIU
     Route: 058
     Dates: start: 19931217
  3. BETASERON [Suspect]
  4. TRILEPTAL [Suspect]
     Indication: DRUG USE FOR UNKNOWN INDICATION
  5. TEGRETOL [Suspect]
     Indication: TRIGEMINAL NEURALGIA
  6. SEROQUEL [Concomitant]
     Indication: DEPRESSION
  7. CLONAZEPAM [Concomitant]
     Indication: DRUG USE FOR UNKNOWN INDICATION
  8. CORTICOSTEROID NOS [Concomitant]
     Indication: OPTIC NEURITIS
     Route: 042
     Dates: start: 19840101

REACTIONS (1)
  - PSYCHOTIC DISORDER [None]
